FAERS Safety Report 12221937 (Version 1)
Quarter: 2016Q1

REPORT INFORMATION
  Report Type: Spontaneous
  Country: GB (occurrence: GB)
  Receive Date: 20160330
  Receipt Date: 20160330
  Transmission Date: 20160526
  Serious: Yes (Hospitalization)
  Sender: FDA-Public Use
  Company Number: GB-TEVA-646912ACC

PATIENT
  Age: 68 Year
  Sex: Male

DRUGS (13)
  1. GLANDOSANE [Concomitant]
  2. CYCLIZINE [Concomitant]
     Active Substance: CYCLIZINE
  3. DOXAZOSIN [Concomitant]
     Active Substance: DOXAZOSIN\DOXAZOSIN MESYLATE
  4. ALLOPURINOL. [Concomitant]
     Active Substance: ALLOPURINOL
  5. WARFARIN [Suspect]
     Active Substance: WARFARIN
  6. BISOPROLOL [Concomitant]
     Active Substance: BISOPROLOL
  7. TAMSULOSIN [Concomitant]
     Active Substance: TAMSULOSIN
  8. ATORVASTATIN [Concomitant]
     Active Substance: ATORVASTATIN
  9. LORAZEPAM. [Concomitant]
     Active Substance: LORAZEPAM
  10. PREGABALIN. [Concomitant]
     Active Substance: PREGABALIN
  11. OMEPRAZOLE. [Concomitant]
     Active Substance: OMEPRAZOLE
  12. BUMETANIDE. [Concomitant]
     Active Substance: BUMETANIDE
  13. ZOPICLONE [Concomitant]
     Active Substance: ZOPICLONE

REACTIONS (4)
  - Cardiac tamponade [Unknown]
  - Dyspnoea [Unknown]
  - Pleural effusion [Unknown]
  - International normalised ratio increased [Unknown]
